FAERS Safety Report 5862068-5 (Version None)
Quarter: 2008Q3

REPORT INFORMATION
  Report Type: 
  Country: None (occurrence: None)
  Receive Date: 20080827
  Receipt Date: 20080827
  Transmission Date: 20090109
  Serious: No
  Sender: FDA-Public Use
  Company Number: None

PATIENT
  Age: 63 Year
  Sex: Female
  Weight: 81.1939 kg

DRUGS (1)
  1. HYDROCHLOROQUINE 200 [Suspect]
     Indication: RHEUMATOID ARTHRITIS
     Dosage: 200 MG 2XDAY PO 047
     Route: 048
     Dates: start: 20080401, end: 20080601

REACTIONS (4)
  - GASTROINTESTINAL DISORDER [None]
  - NAUSEA [None]
  - PHARMACEUTICAL PRODUCT COMPLAINT [None]
  - THERAPEUTIC RESPONSE UNEXPECTED WITH DRUG SUBSTITUTION [None]
